FAERS Safety Report 5691105-6 (Version None)
Quarter: 2008Q2

REPORT INFORMATION
  Report Type: 
  Country: None (occurrence: None)
  Receive Date: 20080401
  Receipt Date: 20080321
  Transmission Date: 20081010
  Serious: Yes (Other)
  Sender: FDA-Public Use
  Company Number: JP-PFIZER INC-2008026630

PATIENT
  Age: 69 Year
  Sex: Male

DRUGS (7)
  1. EPLERENONE [Suspect]
     Dosage: DAILY DOSE:50MG-FREQ:DAILY
     Route: 048
  2. FLORINEF [Concomitant]
     Route: 048
  3. SODIUM CHLORIDE [Concomitant]
  4. CARDENALIN [Concomitant]
     Route: 048
  5. OLMESARTAN MEDOXOMIL [Concomitant]
     Route: 048
  6. LENDORMIN [Concomitant]
     Route: 048
  7. ZETIA [Concomitant]
     Route: 048

REACTIONS (1)
  - BLOOD PRESSURE INCREASED [None]
